FAERS Safety Report 8631088 (Version 5)
Quarter: 2016Q2

REPORT INFORMATION
  Report Type: Report from Study
  Country: DE (occurrence: DE)
  Receive Date: 20120622
  Receipt Date: 20160503
  Transmission Date: 20160815
  Serious: Yes (Other)
  Sender: FDA-Public Use
  Company Number: DE-TEVA-344569USA

PATIENT
  Sex: Female

DRUGS (8)
  1. BENDAMUSTINE [Suspect]
     Active Substance: BENDAMUSTINE
     Dosage: 230 UNK, CYCLE 2 (DAY 1+2)
     Route: 042
     Dates: start: 20120530
  2. BENDAMUSTINE [Suspect]
     Active Substance: BENDAMUSTINE
     Dosage: 230 UNK, CYCLE 2 (DAY 1+2)
     Route: 042
     Dates: start: 20120531
  3. BENDAMUSTINE [Suspect]
     Active Substance: BENDAMUSTINE
     Dosage: 198 UNK, CYCLE 4 (DAY 1+2)
     Route: 042
     Dates: start: 20120725
  4. BISOPROLOL FUMARATE. [Concomitant]
     Active Substance: BISOPROLOL FUMARATE
  5. BENDAMUSTINE [Suspect]
     Active Substance: BENDAMUSTINE
     Indication: CHRONIC LYMPHOCYTIC LEUKAEMIA
     Dosage: 328 UNK, CYCLE 1 (DAY 1+2)
     Route: 042
     Dates: start: 20120425
  6. BENDAMUSTINE [Suspect]
     Active Substance: BENDAMUSTINE
     Dosage: 99 UNK, CYCLE 3 (DAY 1)
     Route: 042
     Dates: start: 20120627
  7. BENDAMUSTINE [Suspect]
     Active Substance: BENDAMUSTINE
     Dosage: 230 UNK, CYCLE 2 (DAY 1+2)
     Route: 042
     Dates: start: 20120426
  8. LEVOTHYROXINE SODIUM. [Concomitant]
     Active Substance: LEVOTHYROXINE SODIUM

REACTIONS (2)
  - Hepatotoxicity [Recovered/Resolved]
  - Alanine aminotransferase increased [Recovered/Resolved]

NARRATIVE: CASE EVENT DATE: 20120514
